FAERS Safety Report 9691972 (Version 3)
Quarter: 2013Q4

REPORT INFORMATION
  Report Type: Spontaneous
  Country: IT (occurrence: IT)
  Receive Date: 20131118
  Receipt Date: 20131218
  Transmission Date: 20140711
  Serious: Yes (Hospitalization)
  Sender: FDA-Public Use
  Company Number: IT-MERCK-1311ITA005291

PATIENT
  Age: 62 Year
  Sex: Male
  Weight: 80 kg

DRUGS (17)
  1. RIBAVIRIN [Suspect]
     Indication: CHRONIC HEPATITIS C
     Dosage: 800 MG DAILY
     Route: 048
     Dates: start: 20130411, end: 20130418
  2. RIBAVIRIN [Suspect]
     Dosage: 600 MG DAILY
     Route: 048
     Dates: start: 20130503
  3. PEGINTERFERON LAMBDA-1A [Suspect]
     Indication: CHRONIC HEPATITIS C
     Dosage: 180 MICROGRAM, QW
     Route: 058
     Dates: start: 20130411, end: 20130418
  4. PEGINTERFERON LAMBDA-1A [Suspect]
     Dosage: 90 MICROGRAM, UNK
     Dates: start: 20130502
  5. DACLATASVIR [Suspect]
     Indication: CHRONIC HEPATITIS C
     Dosage: 60 MG DAILY
     Route: 048
     Dates: start: 20130411, end: 20130418
  6. DACLATASVIR [Suspect]
     Dosage: UNK
     Dates: start: 20130503
  7. SANDIMMUN [Concomitant]
     Indication: PROPHYLAXIS AGAINST TRANSPLANT REJECTION
     Dosage: UNK
     Dates: start: 20120101
  8. EUTIROX [Concomitant]
  9. DELTACORTENE [Concomitant]
  10. FOSIPRES [Concomitant]
  11. ROCALTROL [Concomitant]
     Route: 048
  12. TAVOR (LORAZEPAM) [Concomitant]
  13. ATENOLOL [Concomitant]
  14. ALLOPURINOL [Concomitant]
  15. VITAMIN E ACETATE [Concomitant]
  16. OMEGA-3 [Concomitant]
  17. TAMSULOSIN HYDROCHLORIDE [Concomitant]

REACTIONS (1)
  - Hyperbilirubinaemia [Recovered/Resolved]
